FAERS Safety Report 23749899 (Version 8)
Quarter: 2025Q1

REPORT INFORMATION
  Report Type: Report from Study
  Country: US (occurrence: US)
  Receive Date: 20240417
  Receipt Date: 20250313
  Transmission Date: 20250409
  Serious: Yes (Hospitalization, Other)
  Sender: TAKEDA
  Company Number: US-TAKEDA-2024TUS006611

PATIENT
  Sex: Female
  Weight: 58 kg

DRUGS (65)
  1. HUMAN IMMUNOGLOBULIN G [Suspect]
     Active Substance: HUMAN IMMUNOGLOBULIN G
     Indication: Immunodeficiency common variable
     Dosage: 40 GRAM, Q2WEEKS
     Dates: start: 20240112
  2. HYDROCODONE [Suspect]
     Active Substance: HYDROCODONE
     Indication: Product used for unknown indication
  3. SALINE [Suspect]
     Active Substance: SODIUM CHLORIDE
     Indication: Product used for unknown indication
  4. EPINEPHRINE [Concomitant]
     Active Substance: EPINEPHRINE
  5. ACETAMINOPHEN [Concomitant]
     Active Substance: ACETAMINOPHEN
  6. OMEPRAZOLE [Concomitant]
     Active Substance: OMEPRAZOLE
  7. FAMOTIDINE [Concomitant]
     Active Substance: FAMOTIDINE
  8. DOCUSATE SODIUM [Concomitant]
     Active Substance: DOCUSATE SODIUM
  9. ACYCLOVIR [Concomitant]
     Active Substance: ACYCLOVIR
  10. MIDODRINE HYDROCHLORIDE [Concomitant]
     Active Substance: MIDODRINE HYDROCHLORIDE
  11. ATORVASTATIN CALCIUM [Concomitant]
     Active Substance: ATORVASTATIN CALCIUM
  12. VITAMIN C [Concomitant]
     Active Substance: ASCORBIC ACID
  13. FIORICET [Concomitant]
     Active Substance: ACETAMINOPHEN\BUTALBITAL\CAFFEINE
  14. TOPAMAX [Concomitant]
     Active Substance: TOPIRAMATE
  15. PILOCARPINE HYDROCHLORIDE [Concomitant]
     Active Substance: PILOCARPINE HYDROCHLORIDE
  16. ACETAMINOPHEN\HYDROCODONE [Concomitant]
     Active Substance: ACETAMINOPHEN\HYDROCODONE
  17. HEPARIN [Concomitant]
     Active Substance: HEPARIN SODIUM
  18. SODIUM CHLORIDE [Concomitant]
     Active Substance: SODIUM CHLORIDE
  19. MAGNESIUM OXIDE [Concomitant]
     Active Substance: MAGNESIUM OXIDE
  20. IMITREX [Concomitant]
     Active Substance: SUMATRIPTAN SUCCINATE
  21. LORAZEPAM [Concomitant]
     Active Substance: LORAZEPAM
  22. LEVOTHYROXINE SODIUM [Concomitant]
     Active Substance: LEVOTHYROXINE SODIUM
  23. VITAMIN D [Concomitant]
     Active Substance: VITAMIN D NOS
  24. SUCRALFATE [Concomitant]
     Active Substance: SUCRALFATE
  25. GABAPENTIN [Concomitant]
     Active Substance: GABAPENTIN
  26. ALBUTEROL SULFATE [Concomitant]
     Active Substance: ALBUTEROL SULFATE
  27. HYDROXYCHLOROQUINE SULFATE [Concomitant]
     Active Substance: HYDROXYCHLOROQUINE SULFATE
  28. FLUTICASONE PROPIONATE [Concomitant]
     Active Substance: FLUTICASONE PROPIONATE
  29. MIRTAZAPINE [Concomitant]
     Active Substance: MIRTAZAPINE
  30. METHOTREXATE [Concomitant]
     Active Substance: METHOTREXATE
  31. LIDOCAINE\PRILOCAINE [Concomitant]
     Active Substance: LIDOCAINE\PRILOCAINE
  32. VITAMIN B COMPLEX [Concomitant]
     Active Substance: CYANOCOBALAMIN\DEXPANTHENOL\NIACINAMIDE\PYRIDOXINE HYDROCHLORIDE\RIBOFLAVIN 5^-PHOSPHATE SODIUM\THIA
  33. LACOSAMIDE [Concomitant]
     Active Substance: LACOSAMIDE
  34. CARISOPRODOL [Concomitant]
     Active Substance: CARISOPRODOL
  35. MONTELUKAST SODIUM [Concomitant]
     Active Substance: MONTELUKAST SODIUM
  36. PREDNISONE [Concomitant]
     Active Substance: PREDNISONE
  37. PROMETHAZINE [Concomitant]
     Active Substance: PROMETHAZINE HYDROCHLORIDE
  38. LACTOBACILLUS ACIDOPHILUS\LACTOBACILLUS DELBRUECKII SUBSP. BULGARICUS [Concomitant]
     Active Substance: LACTOBACILLUS ACIDOPHILUS\LACTOBACILLUS DELBRUECKII SUBSP. BULGARICUS
  39. FLUOXETINE HYDROCHLORIDE [Concomitant]
     Active Substance: FLUOXETINE HYDROCHLORIDE
  40. MELOXICAM [Concomitant]
     Active Substance: MELOXICAM
  41. SODIUM [Concomitant]
     Active Substance: SODIUM
  42. DIPHENHYDRAMINE [Concomitant]
     Active Substance: DIPHENHYDRAMINE
  43. DIPHENHYDRAMINE HYDROCHLORIDE [Concomitant]
     Active Substance: DIPHENHYDRAMINE HYDROCHLORIDE
  44. METHYLPREDNISOLONE [Concomitant]
     Active Substance: METHYLPREDNISOLONE
  45. RIBOFLAVIN [Concomitant]
     Active Substance: RIBOFLAVIN
  46. ONDANSETRON HYDROCHLORIDE [Concomitant]
     Active Substance: ONDANSETRON HYDROCHLORIDE
  47. TRAZODONE HCL [Concomitant]
     Active Substance: TRAZODONE HYDROCHLORIDE
  48. CETIRIZINE HCL [Concomitant]
     Active Substance: CETIRIZINE HYDROCHLORIDE
  49. NAYZILAM [Concomitant]
     Active Substance: MIDAZOLAM
  50. BUTALBITAL, ACETAMINOPHEN, AND CAFFEINE [Concomitant]
     Active Substance: ACETAMINOPHEN\BUTALBITAL\CAFFEINE
  51. SODIUM CHLORIDE [Concomitant]
     Active Substance: SODIUM CHLORIDE
  52. COMPAZINE [Concomitant]
     Active Substance: PROCHLORPERAZINE MALEATE
  53. AZELASTINE [Concomitant]
     Active Substance: AZELASTINE
  54. FLUTICASONE [Concomitant]
     Active Substance: FLUTICASONE
  55. PROMETHAZINE HYDROCHLORIDE [Concomitant]
     Active Substance: PROMETHAZINE HYDROCHLORIDE
  56. VITAMIN D2 [Concomitant]
     Active Substance: ERGOCALCIFEROL
  57. ATORVASTATIN [Concomitant]
     Active Substance: ATORVASTATIN
  58. MIDODRINE [Concomitant]
     Active Substance: MIDODRINE
  59. PILOCARPINE [Concomitant]
     Active Substance: PILOCARPINE
  60. ONDANSETRON [Concomitant]
     Active Substance: ONDANSETRON
  61. CETIRIZINE [Concomitant]
     Active Substance: CETIRIZINE HYDROCHLORIDE
  62. MONTELUKAST [Concomitant]
     Active Substance: MONTELUKAST
  63. DOCUSATE [Concomitant]
     Active Substance: DOCUSATE
  64. TRAZODONE [Concomitant]
     Active Substance: TRAZODONE HYDROCHLORIDE
  65. LEVOTHYROXINE [Concomitant]
     Active Substance: LEVOTHYROXINE

REACTIONS (20)
  - Complication associated with device [Unknown]
  - Scar [Unknown]
  - Kidney infection [Unknown]
  - Seizure [Unknown]
  - Weight decreased [Unknown]
  - Fall [Unknown]
  - Memory impairment [Unknown]
  - Hypervolaemia [Unknown]
  - Product use complaint [Unknown]
  - Pain [Unknown]
  - Decreased appetite [Unknown]
  - Amnesia [Unknown]
  - Arthralgia [Unknown]
  - Pruritus [Unknown]
  - Malaise [Unknown]
  - Vomiting [Unknown]
  - Nausea [Unknown]
  - Diarrhoea [Unknown]
  - Migraine [Unknown]
  - Myalgia [Unknown]
